FAERS Safety Report 25764403 (Version 1)
Quarter: 2025Q3

REPORT INFORMATION
  Report Type: Spontaneous
  Country: US (occurrence: US)
  Receive Date: 20250905
  Receipt Date: 20250905
  Transmission Date: 20251020
  Serious: No
  Sender: DOMPE FARMACEUTICI
  Company Number: US-FARMAPROD-202502-0452

PATIENT
  Sex: Male
  Weight: 102.6 kg

DRUGS (26)
  1. OXERVATE [Suspect]
     Active Substance: CENEGERMIN-BKBJ
     Indication: Neurotrophic keratopathy
     Route: 047
     Dates: start: 20230601
  2. OXERVATE [Suspect]
     Active Substance: CENEGERMIN-BKBJ
     Route: 047
     Dates: start: 20250123
  3. OMEPRAZOLE [Concomitant]
     Active Substance: OMEPRAZOLE
  4. LANTUS SOLOSTAR [Concomitant]
     Active Substance: INSULIN GLARGINE
  5. OZEMPIC [Concomitant]
     Active Substance: SEMAGLUTIDE
  6. OFLOXACIN [Concomitant]
     Active Substance: OFLOXACIN
  7. MUPIROCIN [Concomitant]
     Active Substance: MUPIROCIN
  8. IPRATROPIUM BROMIDE [Concomitant]
     Active Substance: IPRATROPIUM BROMIDE
  9. ACETAMINOPHEN [Concomitant]
     Active Substance: ACETAMINOPHEN
  10. IRON [Concomitant]
     Active Substance: IRON
  11. BENZONATATE [Concomitant]
     Active Substance: BENZONATATE
  12. TRAZODONE HCL [Concomitant]
     Active Substance: TRAZODONE HYDROCHLORIDE
  13. RESTASIS [Concomitant]
     Active Substance: CYCLOSPORINE
  14. GABAPENTIN [Concomitant]
     Active Substance: GABAPENTIN
  15. MULTAQ [Concomitant]
     Active Substance: DRONEDARONE
  16. ACYCLOVIR [Concomitant]
     Active Substance: ACYCLOVIR
  17. MAGNESIUM OXIDE [Concomitant]
     Active Substance: MAGNESIUM OXIDE
  18. ROSUVASTATIN CALCIUM [Concomitant]
     Active Substance: ROSUVASTATIN CALCIUM
  19. NOVOLIN 70/30 [Concomitant]
     Active Substance: INSULIN HUMAN
  20. PRILOSEC OTC [Concomitant]
     Active Substance: OMEPRAZOLE MAGNESIUM
  21. FLONASE ALLERGY RELIEF [Concomitant]
     Active Substance: FLUTICASONE PROPIONATE
  22. DULOXETINE HYDROCHLORIDE [Concomitant]
     Active Substance: DULOXETINE HYDROCHLORIDE
  23. CLOPIDOGREL [Concomitant]
     Active Substance: CLOPIDOGREL BISULFATE
  24. METFORMIN HYDROCHLORIDE [Concomitant]
     Active Substance: METFORMIN HYDROCHLORIDE
  25. FUROSEMIDE [Concomitant]
     Active Substance: FUROSEMIDE
  26. ELIQUIS [Concomitant]
     Active Substance: APIXABAN

REACTIONS (1)
  - Abdominal discomfort [Unknown]
